FAERS Safety Report 5645895-9 (Version None)
Quarter: 2008Q1

REPORT INFORMATION
  Report Type: 
  Country: None (occurrence: None)
  Receive Date: 20080229
  Receipt Date: 20080220
  Transmission Date: 20080703
  Serious: Yes (Hospitalization)
  Sender: FDA-Public Use
  Company Number: CA-ABBOTT-08P-028-0434993-00

PATIENT
  Sex: Male

DRUGS (2)
  1. HUMIRA [Suspect]
     Indication: CROHN'S DISEASE
     Route: 058
     Dates: start: 20080107, end: 20080107
  2. HUMIRA [Suspect]
     Route: 058

REACTIONS (4)
  - COLITIS ULCERATIVE [None]
  - DRUG INEFFECTIVE [None]
  - MUCOUS STOOLS [None]
  - RECTAL HAEMORRHAGE [None]
